FAERS Safety Report 10008381 (Version 3)
Quarter: 2015Q3

REPORT INFORMATION
  Report Type: Spontaneous
  Country: US (occurrence: US)
  Receive Date: 20140313
  Receipt Date: 20150814
  Transmission Date: 20151125
  Serious: No
  Sender: FDA-Public Use
  Company Number: US-GILEAD-2013-0077232

PATIENT
  Age: 35 Year
  Sex: Female

DRUGS (4)
  1. COUMADIN [Concomitant]
     Active Substance: WARFARIN SODIUM
  2. FLOLAN [Concomitant]
     Active Substance: EPOPROSTENOL SODIUM
  3. LETAIRIS [Suspect]
     Active Substance: AMBRISENTAN
     Indication: PULMONARY ARTERIAL HYPERTENSION
     Dosage: 10 MG, QD
     Dates: start: 20101101
  4. ADCIRCA [Concomitant]
     Active Substance: TADALAFIL

REACTIONS (2)
  - Tonsillitis [Unknown]
  - Pruritus [Unknown]
